FAERS Safety Report 6700928-3 (Version None)
Quarter: 2010Q2

REPORT INFORMATION
  Report Type: 
  Country: None (occurrence: None)
  Receive Date: 20100428
  Receipt Date: 20100420
  Transmission Date: 20101027
  Serious: Yes (Hospitalization)
  Sender: FDA-Public Use
  Company Number: DK-JNJFOC-20100404983

PATIENT
  Sex: Male

DRUGS (6)
  1. SERENASE [Suspect]
     Indication: DRUG USE FOR UNKNOWN INDICATION
  2. KETOACIDOSIS REGIMEN [Concomitant]
     Route: 065
  3. SEPSIS REGIMEN [Concomitant]
     Route: 065
  4. KABIVEN [Concomitant]
     Route: 065
  5. AQUACEL [Concomitant]
     Route: 065
  6. EXUPAD [Concomitant]
     Route: 065

REACTIONS (1)
  - MUSCULOSKELETAL STIFFNESS [None]
